FAERS Safety Report 6140469-8 (Version None)
Quarter: 2009Q1

REPORT INFORMATION
  Report Type: 
  Country: None (occurrence: None)
  Receive Date: 20090331
  Receipt Date: 20090316
  Transmission Date: 20090719
  Serious: Yes (Hospitalization, Other)
  Sender: FDA-Public Use
  Company Number: 1713747-2009-000005

PATIENT
  Age: 79 Year
  Sex: Male

DRUGS (2)
  1. STAY SAFE 2.5% DEX. LM/LC 2.5/3L, 5PK [Suspect]
     Indication: RENAL FAILURE CHRONIC
     Dosage: INTRAPERITONEALLY
     Dates: start: 20090225
  2. DELFLEX 2.5% DEX. LM/LC 5L, 2-PK [Suspect]

REACTIONS (6)
  - BACTERIAL INFECTION [None]
  - CULTURE POSITIVE [None]
  - DIARRHOEA [None]
  - GASTROINTESTINAL INFECTION [None]
  - PERITONITIS [None]
  - THERAPEUTIC RESPONSE DECREASED [None]
